FAERS Safety Report 8723334 (Version 2)
Quarter: 2012Q4

REPORT INFORMATION
  Report Type: 
  Country: US (occurrence: US)
  Receive Date: 20120814
  Receipt Date: 20121107
  Transmission Date: 20130627
  Serious: No
  Sender: FDA-Public Use
  Company Number: US-ASTRAZENECA-2012SE56186

PATIENT
  Age: 4 Month
  Sex: Female
  Weight: 13 kg

DRUGS (2)
  1. PRILOSEC [Suspect]
     Indication: GASTROOESOPHAGEAL REFLUX DISEASE
     Route: 048
     Dates: start: 20110622, end: 201112
  2. PRILOSEC [Suspect]
     Indication: GASTROOESOPHAGEAL REFLUX DISEASE
     Route: 048
     Dates: start: 20111107

REACTIONS (4)
  - Ear infection [Recovered/Resolved]
  - Ear disorder [Unknown]
  - Off label use [Unknown]
  - Drug ineffective [Unknown]
